FAERS Safety Report 6299661-4 (Version None)
Quarter: 2009Q3

REPORT INFORMATION
  Report Type: 
  Country: None (occurrence: None)
  Receive Date: 20090805
  Receipt Date: 20090805
  Transmission Date: 20100115
  Serious: Yes (Other)
  Sender: FDA-Public Use
  Company Number: None

PATIENT
  Age: 51 Year
  Sex: Male
  Weight: 122.4712 kg

DRUGS (13)
  1. TOVIAZ [Suspect]
     Indication: MICTURITION URGENCY
     Dosage: 8 MG 1 TABLET PER DAY PO
     Route: 048
     Dates: start: 20090717, end: 20090804
  2. LITHIUM CARBONATE [Concomitant]
  3. CLONAZEPAM [Concomitant]
  4. TERAZOSIN HCL [Concomitant]
  5. BENAZEPRIL HYDROCHLORIDE [Concomitant]
  6. FEOSOL [Concomitant]
  7. VITAMIN D SUPPLEMENT [Concomitant]
  8. MULTI-VITAMIN SUPPLEMENT [Concomitant]
  9. SAW PALMETTO SUPPLEMENT [Concomitant]
  10. ASPIRIN [Concomitant]
  11. FISH OIL SUPPLEMENT [Concomitant]
  12. HYDROCHLOROTHIAZIDE [Concomitant]
  13. CLOMIPHENE CITRATE [Concomitant]

REACTIONS (3)
  - FEELING HOT [None]
  - HYPERHIDROSIS [None]
  - PRODUCT SUBSTITUTION ISSUE [None]
